FAERS Safety Report 24972828 (Version 3)
Quarter: 2025Q1

REPORT INFORMATION
  Report Type: Spontaneous
  Country: US (occurrence: US)
  Receive Date: 20250215
  Receipt Date: 20250303
  Transmission Date: 20250408
  Serious: Yes (Hospitalization)
  Sender: SAMSUNG BIOEPIS
  Company Number: US-SAMSUNG BIOEPIS-SB-2025-05305

PATIENT
  Age: 76 Year
  Sex: Female

DRUGS (1)
  1. RENFLEXIS [Suspect]
     Active Substance: INFLIXIMAB-ABDA
     Indication: Product used for unknown indication

REACTIONS (8)
  - Pain in extremity [Unknown]
  - Terminal state [Unknown]
  - Dementia [Unknown]
  - Fatigue [Unknown]
  - Pain [Unknown]
  - Illness [Unknown]
  - Bedridden [Unknown]
  - Therapeutic response shortened [Unknown]
